FAERS Safety Report 20126890 (Version 1)
Quarter: 2021Q4

REPORT INFORMATION
  Report Type: Spontaneous
  Country: US (occurrence: US)
  Receive Date: 20211129
  Receipt Date: 20211129
  Transmission Date: 20220303
  Serious: No
  Sender: FDA-Public Use
  Company Number: US-SLATE RUN PHARMACEUTICALS-21US000809

PATIENT

DRUGS (7)
  1. VORICONAZOLE [Suspect]
     Active Substance: VORICONAZOLE
     Indication: Aspergillus infection
     Dosage: UNK
  2. VORICONAZOLE [Suspect]
     Active Substance: VORICONAZOLE
     Indication: Disseminated aspergillosis
  3. TACROLIMUS [Concomitant]
     Active Substance: TACROLIMUS
     Indication: Immunosuppression
  4. PREDNISONE [Concomitant]
     Active Substance: PREDNISONE
     Indication: Immunosuppression
  5. MYCOPHENOLIC ACID [Concomitant]
     Active Substance: MYCOPHENOLIC ACID
     Indication: Immunosuppression
  6. MICAFUNGIN [Concomitant]
     Active Substance: MICAFUNGIN
     Indication: Aspergillus infection
  7. MICAFUNGIN [Concomitant]
     Active Substance: MICAFUNGIN
     Indication: Disseminated aspergillosis

REACTIONS (3)
  - Dizziness [Unknown]
  - Abnormal dreams [Unknown]
  - Drug resistance [Unknown]
